FAERS Safety Report 15010190 (Version 1)
Quarter: 2018Q2

REPORT INFORMATION
  Report Type: Spontaneous
  Country: US (occurrence: US)
  Receive Date: 20180614
  Receipt Date: 20180614
  Transmission Date: 20180711
  Serious: No
  Sender: FDA-Public Use
  Company Number: US-ACCORD-065353

PATIENT
  Age: 66 Year
  Sex: Female
  Weight: 79.38 kg

DRUGS (1)
  1. CLOZAPINE. [Suspect]
     Active Substance: CLOZAPINE
     Indication: SCHIZOPHRENIA
     Dosage: STRENGTH: 100 MG??2 PO BID (200 MG BID)
     Route: 048

REACTIONS (4)
  - Drooling [Unknown]
  - Insomnia [Unknown]
  - Sleep disorder [Not Recovered/Not Resolved]
  - Hyperhidrosis [Not Recovered/Not Resolved]
